FAERS Safety Report 7421094-5 (Version None)
Quarter: 2011Q2

REPORT INFORMATION
  Report Type: 
  Country: None (occurrence: None)
  Receive Date: 20110418
  Receipt Date: 20110325
  Transmission Date: 20111010
  Serious: Yes (Death, Hospitalization, Other)
  Sender: FDA-Public Use
  Company Number: US-BAYER-201042118NA

PATIENT
  Age: 31 Year
  Sex: Female
  Weight: 149.66 kg

DRUGS (3)
  1. SPRINTEC [Concomitant]
     Dosage: UNK
     Dates: end: 20090108
  2. PROVERA [Concomitant]
     Dosage: 10 MG, UNK
     Dates: start: 20081101
  3. YAZ [Suspect]
     Indication: PRODUCT USED FOR UNKNOWN INDICATION
     Dosage: UNK
     Dates: start: 20090121, end: 20090302

REACTIONS (1)
  - PULMONARY EMBOLISM [None]
